FAERS Safety Report 6647808-X (Version None)
Quarter: 2010Q1

REPORT INFORMATION
  Report Type: 
  Country: None (occurrence: None)
  Receive Date: 20100324
  Receipt Date: 20100315
  Transmission Date: 20100710
  Serious: No
  Sender: FDA-Public Use
  Company Number: 2009BI039974

PATIENT
  Age: 45 Year
  Sex: Male

DRUGS (1)
  1. TYSABRI [Suspect]
     Indication: MULTIPLE SCLEROSIS
     Route: 042
     Dates: start: 20090414

REACTIONS (2)
  - EXOSTOSIS [None]
  - MUSCULOSKELETAL PAIN [None]
